FAERS Safety Report 19815581 (Version 1)
Quarter: 2021Q3

REPORT INFORMATION
  Report Type: Spontaneous
  Country: CA (occurrence: CA)
  Receive Date: 20210909
  Receipt Date: 20210909
  Transmission Date: 20211014
  Serious: Yes (Hospitalization, Other)
  Sender: FDA-Public Use
  Company Number: CA-CELGENEUS-CAN-20210707338

PATIENT
  Age: 73 Year
  Sex: Male

DRUGS (25)
  1. VENETOCLAX. [Suspect]
     Active Substance: VENETOCLAX
     Indication: ACUTE MYELOID LEUKAEMIA
     Route: 065
     Dates: start: 20210621
  2. MEROPENEM. [Concomitant]
     Active Substance: MEROPENEM
     Indication: ENTEROBACTER BACTERAEMIA
     Route: 065
     Dates: start: 20210713, end: 20210723
  3. LANSOPRAZOLE. [Concomitant]
     Active Substance: LANSOPRAZOLE
     Indication: PEPTIC ULCER
     Route: 065
     Dates: start: 20210603
  4. ALLOPURINOL. [Concomitant]
     Active Substance: ALLOPURINOL
     Indication: PROPHYLAXIS
     Route: 065
     Dates: start: 20210618
  5. IBUPROFEN. [Concomitant]
     Active Substance: IBUPROFEN
     Indication: SUPPORTIVE CARE
     Route: 065
     Dates: start: 20210706, end: 20210706
  6. LASIX [Concomitant]
     Active Substance: FUROSEMIDE
     Indication: SUPPLEMENTATION THERAPY
     Route: 065
     Dates: start: 20210712, end: 20210713
  7. FUROSEMIDE. [Concomitant]
     Active Substance: FUROSEMIDE
     Indication: DYSPNOEA
     Route: 065
     Dates: start: 20210712, end: 20210713
  8. PROCHLORPERAZINE. [Concomitant]
     Active Substance: PROCHLORPERAZINE
     Indication: PROPHYLAXIS OF NAUSEA AND VOMITING
     Route: 065
     Dates: start: 20210707, end: 20210707
  9. OXYCODONE [Concomitant]
     Active Substance: OXYCODONE
     Indication: OSTEOARTHRITIS
     Route: 065
     Dates: start: 20210707
  10. AZACITIDINE. [Suspect]
     Active Substance: AZACITIDINE
     Indication: ACUTE MYELOID LEUKAEMIA
     Route: 065
     Dates: start: 20210621
  11. PIPERACILLIN AND TAZOBACTAM [Concomitant]
     Active Substance: PIPERACILLIN SODIUM\TAZOBACTAM SODIUM
     Indication: ENTEROBACTER BACTERAEMIA
     Route: 065
     Dates: start: 20210711, end: 20210713
  12. VANCOMYCINE [Concomitant]
     Active Substance: VANCOMYCIN
     Indication: ENTEROBACTER BACTERAEMIA
     Route: 065
     Dates: start: 20210706, end: 20210706
  13. ATENOLOL. [Concomitant]
     Active Substance: ATENOLOL
     Indication: PULMONARY HYPERTENSION
     Route: 065
     Dates: start: 202104
  14. NORMAL SALINE [Concomitant]
     Active Substance: SODIUM CHLORIDE
     Indication: SUPPLEMENTATION THERAPY
     Route: 065
     Dates: start: 20210709, end: 20210713
  15. SODIUM PHOSPHATE [Concomitant]
     Active Substance: SODIUM PHOSPHATE
     Indication: SUPPLEMENTATION THERAPY
     Route: 065
     Dates: start: 20210711, end: 20210711
  16. LORAZEPAM. [Concomitant]
     Active Substance: LORAZEPAM
     Indication: SUPPORTIVE CARE
     Route: 065
     Dates: start: 20210706, end: 20210706
  17. POLYETHYLENE GLYCOL [Concomitant]
     Active Substance: POLYETHYLENE GLYCOLS
     Indication: PRODUCT USED FOR UNKNOWN INDICATION
     Route: 065
     Dates: start: 20210710, end: 20210711
  18. MACROGOL [Concomitant]
     Active Substance: POLYETHYLENE GLYCOLS
     Indication: CONSTIPATION
     Route: 065
     Dates: start: 20210710, end: 20210711
  19. IMIPENEM AND CILASTATIN [Concomitant]
     Active Substance: CILASTATIN SODIUM\IMIPENEM
     Indication: ENTEROBACTER BACTERAEMIA
     Route: 065
     Dates: start: 20210707, end: 20210711
  20. PEVONEDISTAT [Suspect]
     Active Substance: PEVONEDISTAT
     Indication: ACUTE MYELOID LEUKAEMIA
     Route: 065
     Dates: start: 20210621
  21. SENNA [Concomitant]
     Active Substance: SENNA LEAF\SENNOSIDES\SENNOSIDES A AND B
     Indication: CONSTIPATION
     Route: 065
     Dates: start: 20210710
  22. FUROSEMIDE. [Concomitant]
     Active Substance: FUROSEMIDE
     Indication: CORONARY ARTERY DISEASE
     Route: 065
     Dates: start: 2014, end: 20210710
  23. PRAVASTATIN SODIUM. [Concomitant]
     Active Substance: PRAVASTATIN SODIUM
     Indication: CORONARY ARTERY DISEASE
     Route: 065
     Dates: start: 2014
  24. HYDROCORTISONE. [Concomitant]
     Active Substance: HYDROCORTISONE
     Indication: OSTEOARTHRITIS
     Route: 065
     Dates: start: 20210711, end: 20210714
  25. ACETAMINOPHEN. [Concomitant]
     Active Substance: ACETAMINOPHEN
     Indication: SUPPORTIVE CARE
     Route: 065
     Dates: start: 20210706, end: 20210708

REACTIONS (1)
  - Bronchopulmonary aspergillosis [Not Recovered/Not Resolved]

NARRATIVE: CASE EVENT DATE: 20210719
